FAERS Safety Report 4988029-6 (Version None)
Quarter: 2006Q2

REPORT INFORMATION
  Report Type: 
  Country: None (occurrence: None)
  Receive Date: 20060426
  Receipt Date: 20060411
  Transmission Date: 20061013
  Serious: Yes (Life-Threatening, Hospitalization, Disabling, Other)
  Sender: FDA-Public Use
  Company Number: VNL_0006_2006

PATIENT
  Age: 74 Year
  Sex: Female

DRUGS (6)
  1. APO-GO [Suspect]
     Indication: PARKINSON'S DISEASE
     Dosage: 33.75 MG/DAY INFUSION SC
     Route: 058
     Dates: start: 20041102, end: 20051229
  2. SINEMET [Suspect]
     Indication: PARKINSON'S DISEASE
     Dosage: 700 MG QDAY PO
     Route: 048
     Dates: start: 19990101
  3. SINEMET CR [Suspect]
     Indication: PARKINSON'S DISEASE
     Dosage: 1 TAB QDAY PO
     Route: 048
     Dates: start: 19990101
  4. CITALOPRAM [Concomitant]
  5. CLONAZEPAM [Concomitant]
  6. QUETIAPINE FUMARATE [Concomitant]

REACTIONS (4)
  - ANAEMIA HAEMOLYTIC AUTOIMMUNE [None]
  - CONFUSIONAL STATE [None]
  - HALLUCINATION [None]
  - PARANOIA [None]
